FAERS Safety Report 8591409-3 (Version None)
Quarter: 2012Q3

REPORT INFORMATION
  Report Type: 
  Country: None (occurrence: None)
  Receive Date: 20120803
  Receipt Date: 20120803
  Transmission Date: 20120928
  Serious: Yes (Other)
  Sender: FDA-Public Use
  Company Number: None

PATIENT
  Age: 74 Year
  Sex: Female
  Weight: 81.6475 kg

DRUGS (1)
  1. LIPITOR [Suspect]
     Indication: BLOOD CHOLESTEROL
     Dosage: 10 MG DAILY
     Dates: start: 19930901, end: 20120110

REACTIONS (7)
  - NECK PAIN [None]
  - MYOSITIS [None]
  - MYALGIA [None]
  - MUSCLE ATROPHY [None]
  - GAIT DISTURBANCE [None]
  - HYPOVITAMINOSIS [None]
  - MUSCULOSKELETAL STIFFNESS [None]
